FAERS Safety Report 13143430 (Version 3)
Quarter: 2017Q1

REPORT INFORMATION
  Report Type: Spontaneous
  Country: IT (occurrence: IT)
  Receive Date: 20170124
  Receipt Date: 20170208
  Transmission Date: 20170428
  Serious: Yes (Death)
  Sender: FDA-Public Use
  Company Number: IT-PFIZER INC-2017027588

PATIENT
  Age: 77 Year
  Sex: Male
  Weight: 78 kg

DRUGS (5)
  1. FLUOROURACIL TEVA [Suspect]
     Active Substance: FLUOROURACIL
     Indication: CHEMOTHERAPY
     Dosage: 400 MG/M2, SINGLE DOSE ADMINISTRATED ON 48HOURS
     Route: 040
     Dates: start: 20161212, end: 20161214
  2. FLUOROURACIL TEVA [Suspect]
     Active Substance: FLUOROURACIL
     Dosage: 2400 MG/M2, SINGLE DOSE ADMINISTRATED ON 48HOURS
     Route: 042
     Dates: start: 20161212, end: 20161214
  3. ZALTRAP [Suspect]
     Active Substance: ZIV-AFLIBERCEPT
     Indication: CHEMOTHERAPY
     Dosage: 4 MG/KG, SINGLE
     Route: 042
     Dates: start: 20161212, end: 20161212
  4. FOLINIC ACID [Concomitant]
     Active Substance: LEUCOVORIN
     Indication: CHEMOTHERAPY
     Dosage: UNK
     Dates: start: 20161212
  5. IRINOTECAN HOSPIRA [Suspect]
     Active Substance: IRINOTECAN
     Indication: CHEMOTHERAPY
     Dosage: 180 MG/M2, CYCLIC (1 SINGLE ADMINISTRATION)
     Route: 042
     Dates: start: 20161212, end: 20161212

REACTIONS (5)
  - Ventricular dysfunction [Fatal]
  - Atrial fibrillation [Fatal]
  - Respiratory failure [Fatal]
  - Multiple organ dysfunction syndrome [Fatal]
  - Rectal haemorrhage [Fatal]

NARRATIVE: CASE EVENT DATE: 20161216
